FAERS Safety Report 5486450-3 (Version None)
Quarter: 2007Q4

REPORT INFORMATION
  Report Type: 
  Country: None (occurrence: None)
  Receive Date: 20071016
  Receipt Date: 20071011
  Transmission Date: 20080405
  Serious: Yes (Hospitalization)
  Sender: FDA-Public Use
  Company Number: A0687176A

PATIENT
  Sex: Female

DRUGS (16)
  1. PAXIL [Suspect]
     Indication: DEPRESSION
     Route: 048
     Dates: start: 19950101, end: 19960101
  2. LAMICTAL [Suspect]
     Indication: DEPRESSION
     Dosage: 75MG TWICE PER DAY
     Route: 048
     Dates: start: 19980101, end: 19990101
  3. WELLBUTRIN XL [Suspect]
     Indication: BIPOLAR DISORDER
     Dosage: 150MG PER DAY
     Route: 048
     Dates: start: 20070801
  4. ADVAIR DISKUS 100/50 [Suspect]
     Indication: ASTHMA
     Route: 055
  5. ALBUTEROL [Concomitant]
  6. KLONOPIN [Concomitant]
  7. CELEXA [Concomitant]
  8. SYNTHROID [Concomitant]
  9. ADDERALL 20 [Concomitant]
  10. SEROQUEL [Concomitant]
  11. VOLTAREN [Concomitant]
  12. LITHIUM [Concomitant]
  13. FERROUS SULFATE TAB [Concomitant]
  14. TRAZODONE HCL [Concomitant]
  15. VITAMINS [Concomitant]
  16. YAZ [Concomitant]

REACTIONS (11)
  - ADVERSE EVENT [None]
  - ANXIETY [None]
  - CONSTIPATION [None]
  - DRUG INTOLERANCE [None]
  - DRY MOUTH [None]
  - HYPERHIDROSIS [None]
  - PARANOIA [None]
  - RASH [None]
  - SUICIDAL IDEATION [None]
  - TINNITUS [None]
  - TREMOR [None]
